FAERS Safety Report 18126983 (Version 1)
Quarter: 2020Q3

REPORT INFORMATION
  Report Type: Report from Study
  Country: US (occurrence: US)
  Receive Date: 20200810
  Receipt Date: 20200810
  Transmission Date: 20201103
  Serious: Yes (Other)
  Sender: FDA-Public Use
  Company Number: US-GILEAD-2020-0482897

PATIENT
  Age: 7 Year
  Sex: Female

DRUGS (4)
  1. RELIZORB [Concomitant]
  2. AZTREONAM LYSINE [Suspect]
     Active Substance: AZTREONAM LYSINE
     Indication: CYSTIC FIBROSIS
     Dosage: UNK UNK, TID FOR 28 DAYS
     Route: 055
     Dates: start: 20181012
  3. PULMOZYME [Concomitant]
     Active Substance: DORNASE ALFA
  4. SYMDEKO [Concomitant]
     Active Substance: IVACAFTOR\TEZACAFTOR
     Dosage: 1 WHITE TABLET IN THE MORNING AND 1 BLUE TABLET IN THE EVENING

REACTIONS (4)
  - Staphylococcal infection [Recovered/Resolved]
  - Pseudomonas infection [Not Recovered/Not Resolved]
  - Intentional product misuse [Recovered/Resolved]
  - Staphylococcal infection [Not Recovered/Not Resolved]

NARRATIVE: CASE EVENT DATE: 202003
